FAERS Safety Report 23664759 (Version 1)
Quarter: 2024Q1

REPORT INFORMATION
  Report Type: Spontaneous
  Country: US (occurrence: US)
  Receive Date: 20240322
  Receipt Date: 20240322
  Transmission Date: 20240410
  Serious: Yes (Death)
  Sender: FDA-Public Use
  Company Number: US-PFIZER INC-202400069564

PATIENT
  Age: 83 Year
  Sex: Male

DRUGS (1)
  1. VYNDAMAX [Suspect]
     Active Substance: TAFAMIDIS
     Indication: Cardiac failure congestive
     Dosage: 61 MG, 1X/DAY
     Dates: start: 2023, end: 20240203

REACTIONS (4)
  - Cardiac failure congestive [Fatal]
  - Condition aggravated [Fatal]
  - Amyloidosis [Fatal]
  - Off label use [Unknown]

NARRATIVE: CASE EVENT DATE: 20230101
